FAERS Safety Report 4748333-3 (Version None)
Quarter: 2005Q3

REPORT INFORMATION
  Report Type: 
  Country: None (occurrence: None)
  Receive Date: 20050818
  Receipt Date: 20050311
  Transmission Date: 20060218
  Serious: Yes (Hospitalization, Disabling)
  Sender: FDA-Public Use
  Company Number: US-MERCK-0503USA02699

PATIENT
  Age: 46 Year
  Sex: Male
  Weight: 68 kg

DRUGS (5)
  1. VIOXX [Suspect]
     Indication: ARTHRITIS
     Route: 048
     Dates: start: 19991220, end: 20041017
  2. ZOLOFT [Concomitant]
     Indication: ANXIETY
     Route: 048
     Dates: start: 19990908, end: 20040403
  3. ULTRAM [Concomitant]
     Indication: BACK PAIN
     Route: 048
     Dates: start: 20010725, end: 20020131
  4. TYLENOL [Concomitant]
     Indication: PAIN
     Route: 048
     Dates: start: 19940101
  5. AMITRIPTYLIN [Concomitant]
     Indication: NEURALGIA
     Route: 048
     Dates: start: 20011004, end: 20050101

REACTIONS (9)
  - ANEURYSM [None]
  - ANXIETY [None]
  - ATHEROSCLEROSIS [None]
  - CEREBROVASCULAR ACCIDENT [None]
  - GASTROOESOPHAGEAL REFLUX DISEASE [None]
  - MITRAL VALVE PROLAPSE [None]
  - MUSCULOSKELETAL DISORDER [None]
  - NEAR DROWNING [None]
  - TRANSIENT ISCHAEMIC ATTACK [None]
